FAERS Safety Report 8149465-2 (Version None)
Quarter: 2012Q1

REPORT INFORMATION
  Report Type: 
  Country: None (occurrence: None)
  Receive Date: 20120218
  Receipt Date: 20111019
  Transmission Date: 20120608
  Serious: No
  Sender: FDA-Public Use
  Company Number: US-ALLERGAN-1113721US

PATIENT
  Age: 44 Year
  Sex: Female
  Weight: 53.968 kg

DRUGS (1)
  1. BOTOX COSMETIC [Suspect]
     Indication: SKIN WRINKLING
     Dosage: UNK
     Route: 030
     Dates: start: 20110921, end: 20110921

REACTIONS (14)
  - MASS [None]
  - VISION BLURRED [None]
  - OCULAR HYPERAEMIA [None]
  - DYSARTHRIA [None]
  - INFLUENZA LIKE ILLNESS [None]
  - HEADACHE [None]
  - NAUSEA [None]
  - MIGRAINE [None]
  - DRY EYE [None]
  - EYELID PTOSIS [None]
  - DYSPHAGIA [None]
  - INJECTION SITE MASS [None]
  - HICCUPS [None]
  - NECK PAIN [None]
